FAERS Safety Report 14343967 (Version 2)
Quarter: 2018Q1

REPORT INFORMATION
  Report Type: Spontaneous
  Country: US (occurrence: US)
  Receive Date: 20180102
  Receipt Date: 20180105
  Transmission Date: 20180509
  Serious: No
  Sender: FDA-Public Use
  Company Number: US-ACTELION-A-US2017-162188

PATIENT
  Age: 53 Year
  Sex: Male
  Weight: 80.73 kg

DRUGS (2)
  1. UPTRAVI [Suspect]
     Active Substance: SELEXIPAG
     Indication: PULMONARY ARTERIAL HYPERTENSION
     Dosage: 200 MCG, BID
     Route: 048
  2. UPTRAVI [Suspect]
     Active Substance: SELEXIPAG
     Dosage: 400 UNK, UNK
     Route: 048

REACTIONS (5)
  - Headache [Unknown]
  - Arthralgia [Unknown]
  - Malaise [Unknown]
  - Dysstasia [Unknown]
  - Pain in extremity [Unknown]
